FAERS Safety Report 15753126 (Version 1)
Quarter: 2018Q4

REPORT INFORMATION
  Report Type: Spontaneous
  Country: None (occurrence: None)
  Receive Date: 20181222
  Receipt Date: 20181222
  Transmission Date: 20190205
  Serious: Yes (Hospitalization)
  Sender: FDA-Public Use
  Company Number: VISTAPHARM, INC.-VER201812-000987

PATIENT
  Age: 37 Year
  Sex: Male

DRUGS (7)
  1. METFORMIN [Concomitant]
     Active Substance: METFORMIN HYDROCHLORIDE
     Indication: DIABETES MELLITUS
     Dosage: 500 MG
  2. TENOFOVIR [Concomitant]
     Active Substance: TENOFOVIR
     Indication: HEPATITIS B
     Dosage: 300 MG
  3. LINAGLIPTINE [Concomitant]
     Active Substance: LINAGLIPTIN
     Indication: DIABETES MELLITUS
     Dosage: 5 MG
  4. BACLOFEN. [Concomitant]
     Active Substance: BACLOFEN
     Indication: HICCUPS
  5. PHENYTOIN. [Suspect]
     Active Substance: PHENYTOIN
     Dosage: 150 MG
     Route: 048
  6. PHENYTOIN. [Suspect]
     Active Substance: PHENYTOIN
     Indication: GENERALISED TONIC-CLONIC SEIZURE
     Dosage: 20 MG/KG
     Route: 042
  7. LORAZEPAM. [Concomitant]
     Active Substance: LORAZEPAM
     Indication: PRODUCT USED FOR UNKNOWN INDICATION
     Dosage: 4 MG (INJECTED TWICE)
     Route: 042

REACTIONS (1)
  - Rhabdomyolysis [Recovered/Resolved]
